FAERS Safety Report 7392650-8 (Version None)
Quarter: 2011Q1

REPORT INFORMATION
  Report Type: 
  Country: None (occurrence: None)
  Receive Date: 20110330
  Receipt Date: 20110330
  Transmission Date: 20110831
  Serious: Yes (Hospitalization)
  Sender: FDA-Public Use
  Company Number: None

PATIENT
  Age: 66 Year
  Sex: Male
  Weight: 108.8633 kg

DRUGS (1)
  1. ERGOCALCIFEROL [Suspect]
     Indication: VITAMIN D DEFICIENCY
     Dosage: 50,000 IUS EVERY TWO WEEKS
     Dates: start: 20090101, end: 20110101

REACTIONS (2)
  - NEPHROLITHIASIS [None]
  - AORTIC VALVE STENOSIS [None]
